FAERS Safety Report 5754941-3 (Version None)
Quarter: 2008Q2

REPORT INFORMATION
  Report Type: 
  Country: None (occurrence: None)
  Receive Date: 20080602
  Receipt Date: 20080528
  Transmission Date: 20081010
  Serious: Yes (Other)
  Sender: FDA-Public Use
  Company Number: JP-BRISTOL-MYERS SQUIBB COMPANY-14207526

PATIENT
  Age: 68 Year
  Sex: Male

DRUGS (5)
  1. ABATACEPT [Suspect]
     Indication: RHEUMATOID ARTHRITIS
     Route: 041
     Dates: start: 20070502
  2. PREDONINE [Suspect]
     Route: 048
     Dates: start: 20080307
  3. FAMOTIDINE [Concomitant]
     Route: 048
  4. ISCOTIN [Concomitant]
     Route: 048
  5. PYDOXAL [Concomitant]
     Route: 048

REACTIONS (1)
  - CEREBRAL INFARCTION [None]
